FAERS Safety Report 8166700-5 (Version None)
Quarter: 2012Q1

REPORT INFORMATION
  Report Type: 
  Country: None (occurrence: None)
  Receive Date: 20120103
  Receipt Date: 20111020
  Transmission Date: 20120608
  Serious: No
  Sender: FDA-Public Use
  Company Number: AE-2011-002524

PATIENT
  Age: 57 Year
  Sex: Female
  Weight: 88.4514 kg

DRUGS (5)
  1. RIBASPHERE [Concomitant]
  2. INDERAL [Concomitant]
  3. AMBIEN [Concomitant]
  4. INCIVEK [Suspect]
     Dosage: 2250 MG (750 MG,3 IN 1 D),ORAL
     Route: 048
     Dates: start: 20110831
  5. PEGASYS [Concomitant]

REACTIONS (2)
  - GINGIVAL DISORDER [None]
  - VAGINAL INFECTION [None]
